FAERS Safety Report 9807615 (Version 1)
Quarter: 2014Q1

REPORT INFORMATION
  Report Type: Spontaneous
  Country: US (occurrence: US)
  Receive Date: 20140110
  Receipt Date: 20140110
  Transmission Date: 20141002
  Serious: No
  Sender: FDA-Public Use
  Company Number: US-SANOFI-AVENTIS-2013SA063866

PATIENT
  Age: 87 Year
  Sex: Male
  Weight: 87 kg

DRUGS (5)
  1. PLAVIX [Suspect]
     Dosage: PATIENT TAKES DOSE 4 DAYS A WEEK
     Route: 065
  2. ELIQUIS [Suspect]
     Indication: ATRIAL FIBRILLATION
     Dosage: TAKEN FROM-OVER TWO MONTHS
     Route: 065
  3. ATENOLOL [Concomitant]
  4. CRESTOR [Concomitant]
  5. VITAMINS [Concomitant]

REACTIONS (2)
  - Tinnitus [Not Recovered/Not Resolved]
  - Dizziness [Not Recovered/Not Resolved]
